FAERS Safety Report 7158700-9 (Version None)
Quarter: 2010Q4

REPORT INFORMATION
  Report Type: 
  Country: None (occurrence: None)
  Receive Date: 20101201
  Receipt Date: 20101112
  Transmission Date: 20110411
  Serious: Yes (Other)
  Sender: FDA-Public Use
  Company Number: CIO10016184

PATIENT
  Sex: Female

DRUGS (4)
  1. CREST PRO-HEALTH TOOTHPASTE, CLEAN MINT FLAVOR(SODIUM POLYPHOSPHATE 13 [Suspect]
     Dosage: 1 APPLIC, 1 /DAY FOR 1 DAY, INTRAORAL
     Dates: start: 20101111, end: 20101111
  2. NEXIUM [Concomitant]
  3. PREMPRO [Concomitant]
  4. SIMVASTATIN [Concomitant]

REACTIONS (2)
  - ANAPHYLACTIC REACTION [None]
  - SENSORY DISTURBANCE [None]
